FAERS Safety Report 12236070 (Version 3)
Quarter: 2016Q2

REPORT INFORMATION
  Report Type: Spontaneous
  Country: US (occurrence: US)
  Receive Date: 20160404
  Receipt Date: 20160617
  Transmission Date: 20160815
  Serious: Yes (Other)
  Sender: FDA-Public Use
  Company Number: US-MDT-ADR-2016-00623

PATIENT
  Age: 45 Year
  Sex: Female

DRUGS (11)
  1. HIPREX [Suspect]
     Active Substance: METHENAMINE HIPPURATE
  2. MVI [Suspect]
     Active Substance: VITAMINS
  3. SENOKOT [Suspect]
     Active Substance: SENNOSIDES
  4. THE MAGIC BULLET [Suspect]
     Active Substance: BISACODYL
  5. BACLOFEN. [Suspect]
     Active Substance: BACLOFEN
     Route: 048
  6. DITROPAN [Suspect]
     Active Substance: OXYBUTYNIN CHLORIDE
  7. DANTROLENE [Suspect]
     Active Substance: DANTROLENE
  8. FIBERCON [Suspect]
     Active Substance: CALCIUM POLYCARBOPHIL
  9. LIORESAL [Suspect]
     Active Substance: BACLOFEN
     Dosage: 360MCG/DAY
     Route: 037
  10. PROCTOFOAM [Suspect]
     Active Substance: PRAMOXINE HYDROCHLORIDE
  11. VITAMIN C [Suspect]
     Active Substance: ASCORBIC ACID

REACTIONS (2)
  - Muscle spasticity [Unknown]
  - Therapeutic response decreased [Unknown]
